FAERS Safety Report 14303325 (Version 1)
Quarter: 2017Q4

REPORT INFORMATION
  Report Type: Spontaneous
  Country: FR (occurrence: FR)
  Receive Date: 20171219
  Receipt Date: 20171219
  Transmission Date: 20180321
  Serious: Yes (Hospitalization)
  Sender: FDA-Public Use
  Company Number: FR-OTSUKA-19795574

PATIENT
  Age: 31 Year
  Sex: Female
  Weight: 55 kg

DRUGS (2)
  1. DEPAMIDE [Concomitant]
     Active Substance: VALPROMIDE
     Indication: THYMUS DISORDER
     Dosage: 900 MG, QD
     Route: 048
     Dates: start: 201210, end: 201305
  2. ABILIFY [Suspect]
     Active Substance: ARIPIPRAZOLE
     Indication: PRODUCT USED FOR UNKNOWN INDICATION
     Dosage: DOSE REDUCED TO 10MG
     Route: 048
     Dates: start: 201210, end: 201305

REACTIONS (5)
  - Nervousness [Recovered/Resolved]
  - Off label use [Unknown]
  - Akathisia [Recovered/Resolved]
  - Anxiety [Recovered/Resolved]
  - Tension [Recovered/Resolved]

NARRATIVE: CASE EVENT DATE: 201304
